FAERS Safety Report 21790841 (Version 1)
Quarter: 2022Q4

REPORT INFORMATION
  Report Type: Report from Study
  Country: US (occurrence: US)
  Receive Date: 20221228
  Receipt Date: 20221228
  Transmission Date: 20230113
  Serious: No
  Sender: FDA-Public Use
  Company Number: US-CLOVIS ONCOLOGY-CLO-2022-001014

PATIENT
  Sex: Male

DRUGS (2)
  1. RUBRACA [Suspect]
     Active Substance: RUCAPARIB CAMSYLATE
     Indication: Prostate cancer
     Dosage: 600 MILLIGRAM, BID
     Route: 048
     Dates: start: 20220828
  2. ABIRATERONE [Concomitant]
     Active Substance: ABIRATERONE
     Indication: Product used for unknown indication
     Dosage: UNK

REACTIONS (5)
  - Tooth fracture [Unknown]
  - Constipation [Unknown]
  - Abdominal discomfort [Unknown]
  - Dizziness [Not Recovered/Not Resolved]
  - Nausea [Unknown]
